FAERS Safety Report 5538113-3 (Version None)
Quarter: 2007Q4

REPORT INFORMATION
  Report Type: 
  Country: None (occurrence: None)
  Receive Date: 20071207
  Receipt Date: 20071125
  Transmission Date: 20080405
  Serious: Yes (Other)
  Sender: FDA-Public Use
  Company Number: US-PFIZER INC-2007100610

PATIENT
  Sex: Female
  Weight: 53.5 kg

DRUGS (11)
  1. CHANTIX [Suspect]
     Indication: SMOKING CESSATION THERAPY
     Dates: start: 20071122, end: 20071125
  2. SEROQUEL [Concomitant]
  3. VICOPROFEN [Concomitant]
  4. ALPRAZOLAM [Concomitant]
  5. LEXAPRO [Concomitant]
  6. METRONIDAZOLE [Concomitant]
  7. INTERFERON [Concomitant]
  8. RIBAVIRIN [Concomitant]
  9. NEUPOGEN [Concomitant]
  10. PROCRIT [Concomitant]
  11. CYMBALTA [Concomitant]

REACTIONS (6)
  - DYSPHAGIA [None]
  - DYSPNOEA [None]
  - PHARYNGEAL OEDEMA [None]
  - RESTLESSNESS [None]
  - SWELLING FACE [None]
  - SWOLLEN TONGUE [None]
